FAERS Safety Report 10721409 (Version 1)
Quarter: 2015Q1

REPORT INFORMATION
  Report Type: Spontaneous
  Country: US (occurrence: US)
  Receive Date: 20150119
  Receipt Date: 20150119
  Transmission Date: 20150721
  Serious: No
  Sender: FDA-Public Use
  Company Number: US-009507513-1501USA005684

PATIENT
  Age: 80 Year
  Sex: Female

DRUGS (2)
  1. LOVASTATIN. [Concomitant]
     Active Substance: LOVASTATIN
     Dosage: UNK
  2. ASMANEX [Suspect]
     Active Substance: MOMETASONE FUROATE
     Indication: ASTHMA
     Dosage: 2 DF, QD (220 MCG/ 2 PUFFS ONCE DAILY AS NEEDED)
     Route: 055

REACTIONS (4)
  - Dyspnoea [Recovering/Resolving]
  - Fatigue [Recovering/Resolving]
  - Drug dose omission [Unknown]
  - Product quality issue [Unknown]

NARRATIVE: CASE EVENT DATE: 20150107
